FAERS Safety Report 25806678 (Version 3)
Quarter: 2025Q4

REPORT INFORMATION
  Report Type: Spontaneous
  Country: US (occurrence: US)
  Receive Date: 20250916
  Receipt Date: 20251112
  Transmission Date: 20260117
  Serious: No
  Sender: LUPIN
  Company Number: US-LUPIN PHARMACEUTICALS INC.-2025-08191

PATIENT
  Age: 35 Year

DRUGS (2)
  1. TOLVAPTAN [Suspect]
     Active Substance: TOLVAPTAN
     Indication: Congenital cystic kidney disease
     Dosage: 60 MILLIGRAM, QD
  2. TOLVAPTAN [Suspect]
     Active Substance: TOLVAPTAN
     Indication: Congenital cystic kidney disease
     Dosage: 30 MG, QD (DAILY)

REACTIONS (6)
  - Thirst [Unknown]
  - Pollakiuria [Unknown]
  - Alopecia [Unknown]
  - Onychoclasis [Unknown]
  - Tachycardia [Unknown]
  - Product substitution issue [Unknown]
